FAERS Safety Report 6666258-3 (Version None)
Quarter: 2010Q2

REPORT INFORMATION
  Report Type: 
  Country: None (occurrence: None)
  Receive Date: 20100402
  Receipt Date: 20100329
  Transmission Date: 20101027
  Serious: Yes (Death)
  Sender: FDA-Public Use
  Company Number: DE-JNJFOC-20100204019

PATIENT
  Sex: Female

DRUGS (4)
  1. TOPAMAX [Suspect]
     Indication: EPILEPSY
     Route: 048
     Dates: start: 20091229, end: 20100107
  2. UNACID PD [Concomitant]
     Indication: PNEUMONIA
     Route: 042
     Dates: start: 20091228, end: 20100103
  3. ALLOPURINOL [Concomitant]
     Indication: HYPERURICAEMIA
     Route: 048
     Dates: end: 20100105
  4. FENISTIL [Concomitant]
     Indication: RASH GENERALISED
     Route: 065

REACTIONS (2)
  - HEPATIC FAILURE [None]
  - RENAL FAILURE [None]
